FAERS Safety Report 14243529 (Version 10)
Quarter: 2025Q2

REPORT INFORMATION
  Report Type: Spontaneous
  Country: GB (occurrence: GB)
  Receive Date: 20171201
  Receipt Date: 20250418
  Transmission Date: 20250716
  Serious: Yes (Other)
  Sender: Haleon PLC
  Company Number: GB-GKKIN-20171129-PI290482-2

PATIENT
  Age: 65 Year
  Sex: Female
  Weight: 89 kg

DRUGS (12)
  1. ORLISTAT [Suspect]
     Active Substance: ORLISTAT
     Indication: Obesity
     Route: 048
     Dates: end: 20150826
  2. SYMBICORT [Concomitant]
     Active Substance: BUDESONIDE\FORMOTEROL FUMARATE DIHYDRATE
     Indication: Product used for unknown indication
     Route: 055
  3. TIOTROPIUM [Concomitant]
     Active Substance: TIOTROPIUM
     Indication: Product used for unknown indication
     Route: 055
  4. OMEPRAZOLE [Concomitant]
     Active Substance: OMEPRAZOLE
     Indication: Product used for unknown indication
     Route: 065
  5. ALBUTEROL [Concomitant]
     Active Substance: ALBUTEROL
     Indication: Product used for unknown indication
     Route: 055
  6. CLONIDINE [Concomitant]
     Active Substance: CLONIDINE
     Indication: Product used for unknown indication
     Route: 065
  7. GABAPENTIN [Concomitant]
     Active Substance: GABAPENTIN
     Indication: Product used for unknown indication
     Route: 065
  8. ESCITALOPRAM [Concomitant]
     Active Substance: ESCITALOPRAM OXALATE
     Indication: Product used for unknown indication
     Route: 065
  9. AMITRIPTYLINE [Concomitant]
     Active Substance: AMITRIPTYLINE
     Indication: Product used for unknown indication
     Route: 065
  10. CARBOCYSTEINE [Concomitant]
     Active Substance: CARBOCYSTEINE
     Indication: Product used for unknown indication
     Route: 065
  11. LINAGLIPTIN [Concomitant]
     Active Substance: LINAGLIPTIN
     Indication: Product used for unknown indication
     Route: 065
  12. ATORVASTATIN [Concomitant]
     Active Substance: ATORVASTATIN
     Indication: Product used for unknown indication
     Route: 065

REACTIONS (11)
  - Renal failure [Recovering/Resolving]
  - Dyspnoea exertional [Recovering/Resolving]
  - Renal tubular necrosis [Recovering/Resolving]
  - Crystal nephropathy [Recovering/Resolving]
  - Renal impairment [Recovering/Resolving]
  - Acute kidney injury [Not Recovered/Not Resolved]
  - Dyspnoea [Unknown]
  - Pleural effusion [Recovering/Resolving]
  - Kidney fibrosis [Recovering/Resolving]
  - Lethargy [Unknown]
  - Renal tubular atrophy [Recovering/Resolving]

NARRATIVE: CASE EVENT DATE: 20150826
